FAERS Safety Report 9164207 (Version 1)
Quarter: 2013Q1

REPORT INFORMATION
  Report Type: Spontaneous
  Country: US (occurrence: US)
  Receive Date: 20130315
  Receipt Date: 20130315
  Transmission Date: 20140127
  Serious: No
  Sender: FDA-Public Use
  Company Number: US-009507513-1303USA007182

PATIENT
  Sex: Male

DRUGS (2)
  1. JANUVIA [Suspect]
     Indication: DIABETES MELLITUS
     Dosage: 25 MG, QD, ONCE DAILY
     Route: 048
     Dates: start: 201302
  2. JANUVIA [Suspect]
     Dosage: 50 MG, QD
     Route: 048

REACTIONS (2)
  - Lung infection [Unknown]
  - Drug ineffective [Unknown]
